FAERS Safety Report 25539873 (Version 3)
Quarter: 2025Q3

REPORT INFORMATION
  Report Type: Report from Study
  Country: IN (occurrence: IN)
  Receive Date: 20250710
  Receipt Date: 20250815
  Transmission Date: 20251021
  Serious: Yes (Hospitalization, Other)
  Sender: PFIZER
  Company Number: IN-TAKEDA-2025TUS061348

PATIENT
  Age: 65 Year
  Sex: Male

DRUGS (1)
  1. ADCETRIS [Suspect]
     Active Substance: BRENTUXIMAB VEDOTIN
     Indication: Hodgkin^s disease
     Route: 042
     Dates: start: 20250610

REACTIONS (5)
  - White blood cell count decreased [Unknown]
  - General physical health deterioration [Unknown]
  - Dysstasia [Unknown]
  - Speech disorder [Unknown]
  - Bedridden [Unknown]
